FAERS Safety Report 16406564 (Version 2)
Quarter: 2019Q3

REPORT INFORMATION
  Report Type: Spontaneous
  Country: FR (occurrence: FR)
  Receive Date: 20190607
  Receipt Date: 20190811
  Transmission Date: 20191004
  Serious: Yes (Death, Other)
  Sender: FDA-Public Use
  Company Number: PHHY2019FR131696

PATIENT
  Age: 83 Year
  Sex: Female

DRUGS (2)
  1. TRAMETINIB [Suspect]
     Active Substance: TRAMETINIB
     Indication: CHRONIC MYELOMONOCYTIC LEUKAEMIA
     Dosage: 2 MG, QD
     Route: 065
  2. HYDROXYCARBAMIDE [Suspect]
     Active Substance: HYDROXYUREA
     Indication: CHRONIC MYELOMONOCYTIC LEUKAEMIA
     Dosage: 1000 MG, QD
     Route: 065

REACTIONS (9)
  - Aphasia [Recovered/Resolved]
  - Toxic encephalopathy [Recovered/Resolved]
  - Cytopenia [Unknown]
  - Product use in unapproved indication [Unknown]
  - Central nervous system leukaemia [Unknown]
  - Mental status changes [Fatal]
  - Aphasia [Fatal]
  - Confusional state [Recovered/Resolved]
  - Toxic encephalopathy [Fatal]
